FAERS Safety Report 9444673 (Version 1)
Quarter: 2013Q3

REPORT INFORMATION
  Report Type: Spontaneous
  Country: US (occurrence: None)
  Receive Date: 20130805
  Receipt Date: 20130805
  Transmission Date: 20140515
  Serious: Yes (Hospitalization)
  Sender: FDA-Public Use
  Company Number: AUR-APL-2013-06323

PATIENT
  Age: 65 Year
  Sex: Female
  Weight: 72.5 kg

DRUGS (5)
  1. LISINOPRIL (LISINOPRIL) [Suspect]
     Indication: HYPERTENSION
     Dosage: 80 MG (40 MG, 2 IN 1 D) UNKNOWN
  2. QUINAPRIL [Suspect]
     Dosage: 40 MG, 2 IN 1 D
  3. METFORMIN [Concomitant]
  4. DILTIAZEM [Concomitant]
  5. LEVOTHYROXINE [Concomitant]

REACTIONS (2)
  - Drug ineffective [None]
  - Blood pressure increased [None]
